FAERS Safety Report 15968679 (Version 5)
Quarter: 2019Q2

REPORT INFORMATION
  Report Type: Report from Study
  Country: ZA (occurrence: ZA)
  Receive Date: 20190215
  Receipt Date: 20190607
  Transmission Date: 20190711
  Serious: Yes (Hospitalization)
  Sender: FDA-Public Use
  Company Number: ZA-SA-2019SA034909

PATIENT
  Age: 53 Year
  Sex: Female

DRUGS (7)
  1. SINUPRET [ASCORBIC ACID;GENTIANA LUTEA ROOT;PRIMULA SPP. FLOWER;RUMEX [Concomitant]
     Dosage: AB-10 MG
     Dates: start: 20181211
  2. LOMANOR [Concomitant]
     Active Substance: AMLODIPINE BESYLATE
     Dosage: UNK UNK, QD AS
  3. OPTISULIN (INSULIN GLARGINE) [Suspect]
     Active Substance: INSULIN GLARGINE
     Dosage: 8 U, BT
     Dates: start: 20181017
  4. NO STUDY DRUG GIVEN [Suspect]
     Active Substance: UNSPECIFIED INGREDIENT
  5. WARFARIN [Concomitant]
     Active Substance: WARFARIN
     Dosage: 7.5 MG, QD
     Dates: start: 20181018
  6. GLUCONORM [METFORMIN HYDROCHLORIDE] [Concomitant]
     Dosage: 500 MG, BID
     Dates: start: 20130108
  7. GLICLAZIDE [Concomitant]
     Active Substance: GLICLAZIDE
     Dosage: 80 MG, BID
     Dates: start: 20130101

REACTIONS (6)
  - Glycosylated haemoglobin increased [Unknown]
  - Arthralgia [Recovered/Resolved]
  - Arthropod bite [Recovered/Resolved]
  - Gastroenteritis [Recovered/Resolved]
  - Hypoglycaemia [Unknown]
  - Arthritis bacterial [Not Recovered/Not Resolved]

NARRATIVE: CASE EVENT DATE: 20190126
